FAERS Safety Report 15969494 (Version 1)
Quarter: 2019Q1

REPORT INFORMATION
  Report Type: Spontaneous
  Country: US (occurrence: US)
  Receive Date: 20190215
  Receipt Date: 20190215
  Transmission Date: 20190418
  Serious: No
  Sender: FDA-Public Use
  Company Number: US-PFIZER INC-2017349121

PATIENT
  Age: 74 Year
  Sex: Male
  Weight: 79.38 kg

DRUGS (6)
  1. GENOTROPIN [Suspect]
     Active Substance: SOMATROPIN
     Indication: HYPOPITUITARISM
     Dosage: 3 MG, DAILY
     Dates: end: 20170802
  2. GENOTROPIN [Suspect]
     Active Substance: SOMATROPIN
     Dosage: UNK
  3. A-HYDROCORT [Concomitant]
     Active Substance: HYDROCORTISONE SODIUM SUCCINATE
     Indication: CORTISOL ABNORMAL
     Dosage: UNK
     Dates: start: 2009
  4. GENOTROPIN [Suspect]
     Active Substance: SOMATROPIN
     Dosage: 1 MG, UNK
     Dates: start: 20170804, end: 20170804
  5. GENOTROPIN [Suspect]
     Active Substance: SOMATROPIN
     Dosage: 0.4 MG, DAILY
  6. GENOTROPIN [Suspect]
     Active Substance: SOMATROPIN
     Indication: PITUITARY TUMOUR
     Dosage: 2 MG, UNK
     Dates: start: 20170803

REACTIONS (6)
  - Low density lipoprotein increased [Unknown]
  - Blood triglycerides increased [Unknown]
  - Non-high-density lipoprotein cholesterol increased [Unknown]
  - Blood cholesterol increased [Unknown]
  - Intentional product use issue [Unknown]
  - Very low density lipoprotein increased [Unknown]

NARRATIVE: CASE EVENT DATE: 20170803
